FAERS Safety Report 4554232-2 (Version None)
Quarter: 2005Q1

REPORT INFORMATION
  Report Type: 
  Country: None (occurrence: None)
  Receive Date: 20050118
  Receipt Date: 20050114
  Transmission Date: 20050727
  Serious: Yes (Life-Threatening)
  Sender: FDA-Public Use
  Company Number: PHRM2005FR00527

PATIENT
  Age: 21 Year
  Sex: Male
  Weight: 70 kg

DRUGS (6)
  1. LOXAPINE HCL [Suspect]
     Indication: SCHIZOPHRENIA
     Dosage: 100 MG, TID
     Route: 048
     Dates: start: 20040401, end: 20041213
  2. CLONAZEPAM [Concomitant]
     Indication: SCHIZOPHRENIA
     Dosage: 1 DF, TID
     Route: 048
  3. CLOPIXOL                           /00876701/ [Concomitant]
     Dosage: 5 DF, QMO
     Route: 030
  4. PARKINANE [Concomitant]
     Route: 048
  5. RISPERDAL [Concomitant]
     Indication: SCHIZOPHRENIA
     Route: 048
  6. TRILEPTAL [Suspect]
     Indication: SCHIZOPHRENIA
     Dosage: 1 DF, BID
     Route: 048
     Dates: start: 20040401, end: 20041213

REACTIONS (2)
  - NEUTROPENIA [None]
  - WHITE BLOOD CELL COUNT DECREASED [None]
